FAERS Safety Report 8851743 (Version 1)
Quarter: 2012Q4

REPORT INFORMATION
  Report Type: 
  Country: US (occurrence: US)
  Receive Date: 20121022
  Receipt Date: 20121022
  Transmission Date: 20130627
  Serious: No
  Sender: FDA-Public Use
  Company Number: US-PFIZER INC-2012262330

PATIENT
  Sex: Female

DRUGS (8)
  1. ZOLOFT [Suspect]
     Indication: DEPRESSION
     Dosage: 100 mg, 2x/day
     Route: 048
  2. LYRICA [Suspect]
     Indication: PAIN
     Dosage: 25 mg, 5x/day
     Route: 048
  3. SYNTHROID [Concomitant]
     Dosage: 100 ug, 1x/day
  4. VITAMIN B COMPLEX [Concomitant]
     Dosage: UNK
  5. VITAMIN B12 [Concomitant]
     Dosage: UNK, monthly
  6. IRON [Concomitant]
     Dosage: UNK
  7. CREON [Concomitant]
     Indication: POSTOPERATIVE CARE
     Dosage: UNK, 3x/day
  8. SEROQUEL [Concomitant]
     Dosage: 25 mg, UNK

REACTIONS (1)
  - Malaise [Unknown]
